FAERS Safety Report 6954601-7 (Version None)
Quarter: 2010Q3

REPORT INFORMATION
  Report Type: 
  Country: None (occurrence: None)
  Receive Date: 20100829
  Receipt Date: 20100722
  Transmission Date: 20110219
  Serious: No
  Sender: FDA-Public Use
  Company Number: US-ABBOTT-10P-163-0659423-00

PATIENT
  Sex: Female
  Weight: 87.168 kg

DRUGS (2)
  1. NIASPAN [Suspect]
     Indication: BLOOD TRIGLYCERIDES INCREASED
     Route: 048
     Dates: start: 20100720
  2. COATED BAYER ASPIRIN [Concomitant]
     Indication: PROPHYLAXIS
     Dosage: 1/2 HOUR BEFORE NIASPAN COATED

REACTIONS (5)
  - BURNING SENSATION [None]
  - FLUSHING [None]
  - NAUSEA [None]
  - PARAESTHESIA [None]
  - SWELLING FACE [None]
